FAERS Safety Report 6965746-X (Version None)
Quarter: 2010Q3

REPORT INFORMATION
  Report Type: 
  Country: None (occurrence: None)
  Receive Date: 20100903
  Receipt Date: 20100902
  Transmission Date: 20110219
  Serious: Yes (Hospitalization)
  Sender: FDA-Public Use
  Company Number: AU-MERCK-1009USA00244

PATIENT
  Age: 76 Year
  Sex: Female

DRUGS (4)
  1. SINEMET [Suspect]
     Indication: PARKINSON'S DISEASE
     Route: 048
     Dates: start: 20100520, end: 20100522
  2. LOSEC (OMEPRAZOLE) [Concomitant]
     Route: 065
  3. PLAVIX [Concomitant]
     Route: 065
  4. ZANIDIP [Concomitant]
     Route: 065

REACTIONS (2)
  - CONFUSIONAL STATE [None]
  - HALLUCINATION [None]
